FAERS Safety Report 17677134 (Version 1)
Quarter: 2020Q2

REPORT INFORMATION
  Report Type: Spontaneous
  Country: US (occurrence: US)
  Receive Date: 20200416
  Receipt Date: 20200416
  Transmission Date: 20200714
  Serious: No
  Sender: FDA-Public Use
  Company Number: US-ARRAY-2020-07743

PATIENT

DRUGS (3)
  1. BRAFTOVI [Suspect]
     Active Substance: ENCORAFENIB
     Indication: MALIGNANT MELANOMA
     Dosage: 450 MG, QD
     Route: 048
     Dates: start: 20200317
  2. LISINOPRIL. [Concomitant]
     Active Substance: LISINOPRIL
     Indication: PRODUCT USED FOR UNKNOWN INDICATION
     Dosage: UNK
  3. MEKTOVI [Suspect]
     Active Substance: BINIMETINIB
     Indication: MALIGNANT MELANOMA
     Dosage: 45 MG, BID
     Route: 048
     Dates: start: 20200317

REACTIONS (2)
  - Arthralgia [Not Recovered/Not Resolved]
  - Erythema [Not Recovered/Not Resolved]
